FAERS Safety Report 10089115 (Version 1)
Quarter: 2014Q2

REPORT INFORMATION
  Report Type: Spontaneous
  Country: US (occurrence: None)
  Receive Date: 20140418
  Receipt Date: 20140418
  Transmission Date: 20141212
  Serious: Yes (Other)
  Sender: FDA-Public Use
  Company Number: None

PATIENT
  Age: 10 Year
  Sex: Male
  Weight: 34.47 kg

DRUGS (1)
  1. METHYLPHENIDATE HCL ER 27 MG AND 36 MG MALLINCKRODT [Suspect]
     Indication: ATTENTION DEFICIT/HYPERACTIVITY DISORDER
     Dosage: 1 PILL ONCE DAILY TAKEN BY MOUTH
     Route: 048
     Dates: start: 20140412, end: 20140413

REACTIONS (4)
  - Drug ineffective [None]
  - Product substitution issue [None]
  - Mood swings [None]
  - Headache [None]
